FAERS Safety Report 6231824-6 (Version None)
Quarter: 2009Q2

REPORT INFORMATION
  Report Type: 
  Country: None (occurrence: None)
  Receive Date: 20090612
  Receipt Date: 20090605
  Transmission Date: 20091009
  Serious: Yes (Hospitalization, Disabling)
  Sender: FDA-Public Use
  Company Number: 2009AL003717

PATIENT
  Age: 74 Year
  Sex: Male

DRUGS (4)
  1. AMANTADINE HCL [Suspect]
     Indication: DYSKINESIA
     Dosage: 200 MG;QD
  2. OLANZAPINE [Concomitant]
  3. L-DOPA [Concomitant]
  4. PRAMIPEXOLE DIHYDROCHLORIDE [Concomitant]

REACTIONS (4)
  - DELUSION [None]
  - MOTOR DYSFUNCTION [None]
  - PSYCHOTIC DISORDER [None]
  - SINGLE PHOTON EMISSION COMPUTERISED TOMOGRAM ABNORMAL [None]
